FAERS Safety Report 5857444-0 (Version None)
Quarter: 2008Q3

REPORT INFORMATION
  Report Type: 
  Country: None (occurrence: None)
  Receive Date: 20080822
  Receipt Date: 20080807
  Transmission Date: 20090109
  Serious: Yes (Hospitalization)
  Sender: FDA-Public Use
  Company Number: ALK_00630_2008

PATIENT
  Sex: Male

DRUGS (5)
  1. VIVITROL [Suspect]
     Indication: ALCOHOLISM
     Dosage: (380 MG 1X/MONTH INTRAMUSCULAR)
     Route: 030
     Dates: start: 20080301, end: 20080301
  2. VIVITROL [Suspect]
     Indication: ALCOHOLISM
     Dosage: (380 MG 1X/MONTH ORAL
     Route: 048
  3. CITALOPRAM HYDROBROMIDE [Concomitant]
  4. DOXEPIN HCL [Concomitant]
  5. INSULIN [Concomitant]

REACTIONS (5)
  - ASTHENIA [None]
  - BLOOD SODIUM DECREASED [None]
  - NAUSEA [None]
  - POLYDIPSIA [None]
  - VOMITING [None]
